FAERS Safety Report 13770555 (Version 1)
Quarter: 2017Q3

REPORT INFORMATION
  Report Type: Spontaneous
  Country: US (occurrence: US)
  Receive Date: 20170720
  Receipt Date: 20170720
  Transmission Date: 20171127
  Serious: Yes (Disabling)
  Sender: FDA-Public Use
  Company Number: None

PATIENT
  Age: 25 Year
  Sex: Female
  Weight: 49.94 kg

DRUGS (5)
  1. ZONEGRAN [Suspect]
     Active Substance: ZONISAMIDE
     Indication: SEIZURE
  2. BANZEL [Suspect]
     Active Substance: RUFINAMIDE
     Indication: SEIZURE
  3. LAMICTAL [Suspect]
     Active Substance: LAMOTRIGINE
     Indication: SEIZURE
  4. DEPAKOTE [Suspect]
     Active Substance: DIVALPROEX SODIUM
     Indication: SEIZURE
  5. TRILEPTAL [Suspect]
     Active Substance: OXCARBAZEPINE
     Indication: SEIZURE

REACTIONS (4)
  - Decreased appetite [None]
  - Asthenia [None]
  - Somnolence [None]
  - Fatigue [None]

NARRATIVE: CASE EVENT DATE: 20160623
